FAERS Safety Report 18707002 (Version 1)
Quarter: 2021Q1

REPORT INFORMATION
  Report Type: Spontaneous
  Country: FR (occurrence: FR)
  Receive Date: 20210106
  Receipt Date: 20210106
  Transmission Date: 20210419
  Serious: Yes (Hospitalization)
  Sender: FDA-Public Use
  Company Number: NVSC2021FR000879

PATIENT
  Age: 67 Year
  Sex: Female
  Weight: 107 kg

DRUGS (4)
  1. LORMETAZEPAM [Suspect]
     Active Substance: LORMETAZEPAM
     Indication: TOXICITY TO VARIOUS AGENTS
     Dosage: 28 DF
     Route: 048
     Dates: start: 20201215, end: 20201215
  2. ALLOPURINOL. [Suspect]
     Active Substance: ALLOPURINOL
     Indication: TOXICITY TO VARIOUS AGENTS
     Dosage: 9 DF
     Route: 048
     Dates: start: 20201215, end: 20201215
  3. LOXEN L P [Suspect]
     Active Substance: NICARDIPINE HYDROCHLORIDE
     Indication: TOXICITY TO VARIOUS AGENTS
     Dosage: 20 DF
     Route: 048
     Dates: start: 20201215, end: 20201215
  4. ZOPICLONE [Suspect]
     Active Substance: ZOPICLONE
     Indication: TOXICITY TO VARIOUS AGENTS
     Dosage: 28 DF
     Route: 048
     Dates: start: 20201215, end: 20201215

REACTIONS (3)
  - Hypopnoea [Recovered/Resolved]
  - Hypotension [Recovered/Resolved]
  - Coma [Recovered/Resolved]

NARRATIVE: CASE EVENT DATE: 20201215
